FAERS Safety Report 19899767 (Version 1)
Quarter: 2021Q3

REPORT INFORMATION
  Report Type: Spontaneous
  Country: US (occurrence: US)
  Receive Date: 20210929
  Receipt Date: 20210929
  Transmission Date: 20211014
  Serious: Yes (Hospitalization)
  Sender: FDA-Public Use
  Company Number: None

PATIENT
  Age: 73 Year
  Sex: Male
  Weight: 96 kg

DRUGS (2)
  1. CARBOPLATIN (CARBOPLATIN 600MG/VIL INJ) [Suspect]
     Active Substance: CARBOPLATIN
     Indication: NON-SMALL CELL LUNG CANCER
     Route: 042
     Dates: start: 20210727, end: 20210727
  2. PACLITAXEL (PACLITAXEL 100MG/17ML INJ,CONC) [Suspect]
     Active Substance: PACLITAXEL
     Indication: NON-SMALL CELL LUNG CANCER
     Route: 042
     Dates: start: 20210727, end: 20210727

REACTIONS (12)
  - Anaphylactic shock [None]
  - Respiratory arrest [None]
  - Unresponsive to stimuli [None]
  - Skin reaction [None]
  - Infusion related reaction [None]
  - Dysphonia [None]
  - Rash [None]
  - Rash erythematous [None]
  - Hypotension [None]
  - Respiratory depression [None]
  - Dyspnoea [None]
  - Pruritus [None]

NARRATIVE: CASE EVENT DATE: 20210727
